FAERS Safety Report 21513437 (Version 1)
Quarter: 2022Q4

REPORT INFORMATION
  Report Type: Spontaneous
  Country: US (occurrence: None)
  Receive Date: 20221026
  Receipt Date: 20221026
  Transmission Date: 20230112
  Serious: Yes (Death)
  Sender: FDA-Public Use
  Company Number: None

PATIENT
  Age: 54 Year
  Sex: Male

DRUGS (1)
  1. SUNITINIB [Suspect]
     Active Substance: SUNITINIB
     Dosage: 50MG DAILY ORAL
     Route: 048
     Dates: start: 202208, end: 20220930

REACTIONS (2)
  - Dysphagia [None]
  - Malnutrition [None]

NARRATIVE: CASE EVENT DATE: 20220930
